FAERS Safety Report 5104659-5 (Version None)
Quarter: 2006Q3

REPORT INFORMATION
  Report Type: 
  Country: None (occurrence: None)
  Receive Date: 20060912
  Receipt Date: 20060912
  Transmission Date: 20061208
  Serious: Yes (Hospitalization)
  Sender: FDA-Public Use
  Company Number: None

PATIENT
  Age: 72 Year
  Sex: Female
  Weight: 63.5036 kg

DRUGS (17)
  1. OXANDRIN [Suspect]
     Indication: WEIGHT DECREASED
     Dosage: 10 MG BID PO
     Route: 048
  2. PLAVIX [Concomitant]
  3. ENALAPRIL [Concomitant]
  4. VYTORIN [Concomitant]
  5. ECOTRIN [Concomitant]
  6. POTASSIUM [Concomitant]
  7. ALBUTEROL [Concomitant]
  8. PULMICORT [Concomitant]
  9. DRATROPIUM [Concomitant]
  10. KYTRIL [Concomitant]
  11. COMPAZINE [Concomitant]
  12. DECADRON W/CHEMO [Concomitant]
  13. DARVOCET-N 100 [Concomitant]
  14. ALOXI [Concomitant]
  15. TAGAMET [Concomitant]
  16. CARBOPLATIN [Concomitant]
  17. TAXOL [Concomitant]

REACTIONS (1)
  - NO ADVERSE DRUG EFFECT [None]
